FAERS Safety Report 9679321 (Version 1)
Quarter: 2013Q4

REPORT INFORMATION
  Report Type: Spontaneous
  Country: US (occurrence: US)
  Receive Date: 20131109
  Receipt Date: 20131109
  Transmission Date: 20140711
  Serious: No
  Sender: FDA-Public Use
  Company Number: US-SANOFI-AVENTIS-2012SA095176

PATIENT
  Age: 61 Year
  Sex: Female

DRUGS (2)
  1. ALLEGRA-D [Suspect]
     Indication: HYPERSENSITIVITY
     Route: 048
  2. ALLEGRA-D [Suspect]
     Indication: RESPIRATORY TRACT CONGESTION
     Route: 048

REACTIONS (2)
  - Medication residue present [Recovered/Resolved]
  - Inappropriate schedule of drug administration [Recovered/Resolved]
